FAERS Safety Report 4104204 (Version 3)
Quarter: 2019Q1

REPORT INFORMATION
  Report Type: Spontaneous
  Country: DE (occurrence: DE)
  Receive Date: 20040310
  Receipt Date: 20190207
  Transmission Date: 20190418
  Serious: Yes (Life-Threatening)
  Sender: FDA-Public Use
  Company Number: DE-ROCHE-355828

PATIENT
  Sex: Male
  Weight: 69 kg

DRUGS (2)
  1. PEGASYS [Suspect]
     Active Substance: PEGINTERFERON ALFA-2A
     Indication: ACUTE HEPATITIS C
     Dosage: NO FREQUENCY SPECIFIED.
     Route: 058
     Dates: start: 20040110, end: 20040111
  2. REBETOL [Suspect]
     Active Substance: RIBAVIRIN
     Indication: ACUTE HEPATITIS C
     Route: 048
     Dates: start: 20040110, end: 20040111

REACTIONS (1)
  - Hypersensitivity [Recovered/Resolved]

NARRATIVE: CASE EVENT DATE: 20040111
